FAERS Safety Report 7583968-4 (Version None)
Quarter: 2011Q2

REPORT INFORMATION
  Report Type: 
  Country: None (occurrence: None)
  Receive Date: 20110630
  Receipt Date: 20110624
  Transmission Date: 20111010
  Serious: Yes (Hospitalization)
  Sender: FDA-Public Use
  Company Number: US-B.I. PHARMACEUTICALS,INC./RIDGEFIELD-2011-BP-13661BP

PATIENT
  Sex: Female

DRUGS (18)
  1. PULMICORT [Concomitant]
     Indication: CHRONIC OBSTRUCTIVE PULMONARY DISEASE
     Dosage: 0.5 MG
     Route: 055
     Dates: start: 20070101
  2. PULMICORT [Concomitant]
     Indication: ASTHMA
  3. VITAMIN D [Concomitant]
     Indication: PROPHYLAXIS
     Route: 048
  4. COUMADIN [Concomitant]
     Indication: ATRIAL FIBRILLATION
     Route: 048
     Dates: start: 20110624
  5. XOPENEX CONCENTRATE [Concomitant]
     Indication: ASTHMA
     Route: 055
     Dates: start: 20090101
  6. SPIRIVA [Concomitant]
     Indication: CHRONIC OBSTRUCTIVE PULMONARY DISEASE
     Dosage: 18 MCG
     Route: 055
     Dates: start: 20070101
  7. CENTRUM SILVER [Concomitant]
     Indication: PROPHYLAXIS
     Route: 048
  8. ZOCOR [Concomitant]
     Indication: BLOOD CHOLESTEROL INCREASED
     Dosage: 40 MG
     Route: 048
  9. LASIX [Concomitant]
     Indication: FLUID RETENTION
     Dosage: 20 MG
     Route: 048
  10. PROVENTIL [Concomitant]
     Indication: CHRONIC OBSTRUCTIVE PULMONARY DISEASE
     Dosage: 2 PUF
     Route: 055
  11. CARDIZEM [Concomitant]
     Indication: ATRIAL FIBRILLATION
     Dosage: 240 MG
     Route: 048
  12. VITAMIN B-12 [Concomitant]
     Indication: PROPHYLAXIS
     Route: 048
  13. VITAMIN A [Concomitant]
     Indication: PROPHYLAXIS
     Route: 048
  14. EVISTA [Concomitant]
     Indication: OSTEOPOROSIS
     Dosage: 60 MG
     Route: 048
  15. SINGULAIR [Concomitant]
     Indication: MULTIPLE ALLERGIES
     Dosage: 10 MG
     Route: 048
  16. CALCIUM GLUCONATE [Concomitant]
     Indication: PROPHYLAXIS
     Route: 048
  17. ZYRTEC [Concomitant]
     Indication: MULTIPLE ALLERGIES
     Route: 048
  18. PRADAXA [Suspect]
     Indication: ATRIAL FIBRILLATION
     Dosage: 300 MG
     Route: 048
     Dates: start: 20110302, end: 20110619

REACTIONS (6)
  - ULCER [None]
  - DYSPEPSIA [None]
  - SENSATION OF FOREIGN BODY [None]
  - ALOPECIA [None]
  - DYSPHAGIA [None]
  - GASTROINTESTINAL DISORDER [None]
